FAERS Safety Report 9240908 (Version 1)
Quarter: 2013Q1

REPORT INFORMATION
  Report Type: Spontaneous
  Country: US (occurrence: None)
  Receive Date: 20121120
  Receipt Date: 20121120
  Transmission Date: 20140127
  Serious: No
  Sender: FDA-Public Use
  Company Number: 1000037392

PATIENT
  Age: 56 Year
  Sex: Female

DRUGS (10)
  1. VIIBRYD [Suspect]
     Indication: DEPRESSION
     Route: 048
     Dates: start: 2012, end: 2012
  2. VIIBRYD [Suspect]
     Indication: ANXIETY
     Route: 048
     Dates: start: 2012, end: 2012
  3. VIIBRYD [Suspect]
     Indication: DEPRESSION
     Route: 048
     Dates: start: 2012, end: 2012
  4. VIIBRYD [Suspect]
     Indication: ANXIETY
     Route: 048
     Dates: start: 2012, end: 2012
  5. LEVOTHYROXINE (LEVOTHYROXINE SODIUM) [Concomitant]
  6. BACLOFEN (BACLOFEN) [Concomitant]
  7. MORPHINE [Concomitant]
  8. HYDROCODONE (HYDROCODONE) [Concomitant]
  9. TOPAMAX (TOPIRAMATE) [Concomitant]
  10. CLONAZEPAM (CLONAZEPAM) [Concomitant]

REACTIONS (10)
  - Formication [None]
  - Fear of death [None]
  - Depression [None]
  - Anxiety [None]
  - Panic attack [None]
  - Agitation [None]
  - Anger [None]
  - Irritability [None]
  - Insomnia [None]
  - Mood altered [None]
